FAERS Safety Report 26035693 (Version 1)
Quarter: 2025Q4

REPORT INFORMATION
  Report Type: Spontaneous
  Country: US (occurrence: None)
  Receive Date: 20251112
  Receipt Date: 20251112
  Transmission Date: 20260118
  Serious: No
  Sender: FDA-CTU
  Company Number: None

PATIENT
  Sex: Male

DRUGS (1)
  1. PULMOZYME [Suspect]
     Active Substance: DORNASE ALFA
     Indication: Acute respiratory failure
     Dosage: 1 MG TWICE A DAY RESPIRATORY (INHALATION)?
     Route: 055
     Dates: start: 20210209

REACTIONS (1)
  - Bronchial secretion retention [None]
